FAERS Safety Report 26177196 (Version 3)
Quarter: 2025Q4

REPORT INFORMATION
  Report Type: Spontaneous
  Country: US (occurrence: US)
  Receive Date: 20251219
  Receipt Date: 20251230
  Transmission Date: 20260118
  Serious: No
  Sender: SANOFI AVENTIS
  Company Number: US-SA-2025SA373378

PATIENT
  Age: 28 Year
  Sex: Female

DRUGS (4)
  1. WAYRILZ [Suspect]
     Active Substance: RILZABRUTINIB
     Indication: Immune thrombocytopenia
     Dosage: 400 MG, BID
     Route: 048
     Dates: start: 20251002, end: 2025
  2. NPLATE [Concomitant]
     Active Substance: ROMIPLOSTIM
     Dosage: UNK
     Route: 058
  3. VITAMINS [Concomitant]
     Active Substance: VITAMINS
     Dosage: UNK, QD
  4. HAIR SKIN NAILS [Concomitant]
     Dosage: UNK

REACTIONS (6)
  - Platelet count decreased [Unknown]
  - Pain [Unknown]
  - Mouth haemorrhage [Unknown]
  - Contusion [Unknown]
  - Headache [Recovered/Resolved]
  - Drug ineffective [Unknown]

NARRATIVE: CASE EVENT DATE: 20250101
